FAERS Safety Report 5628329-X (Version None)
Quarter: 2008Q1

REPORT INFORMATION
  Report Type: 
  Country: None (occurrence: None)
  Receive Date: 20080215
  Receipt Date: 20080213
  Transmission Date: 20080703
  Serious: Yes (Other)
  Sender: FDA-Public Use
  Company Number: US-BOEHRINGER INGELHEIM GMBH, GERMANY-2008-DE-00939GD

PATIENT

DRUGS (2)
  1. MORPHINE SULFATE [Suspect]
     Indication: PAIN
  2. NAROPIN [Suspect]
     Indication: PAIN
     Dosage: 0.5% SOLUTION, UP TO 0.75 ML/KG FOR CHILDREN LESS THAN 20 KG AND 0.5 ML/KG FOR CHILDREN GREATER THAN

REACTIONS (1)
  - HYPOXIA [None]
